FAERS Safety Report 6011186-X (Version None)
Quarter: 2008Q4

REPORT INFORMATION
  Report Type: 
  Country: None (occurrence: None)
  Receive Date: 20081218
  Receipt Date: 20081212
  Transmission Date: 20090506
  Serious: Yes (Hospitalization)
  Sender: FDA-Public Use
  Company Number: JP-MERCK-0812USA03162

PATIENT
  Age: 46 Year
  Sex: Male

DRUGS (2)
  1. HYZAAR [Suspect]
     Indication: HYPERTENSION
     Route: 048
     Dates: start: 20081010, end: 20081017
  2. LANSAP [Concomitant]
     Route: 048
     Dates: start: 20081010, end: 20081017

REACTIONS (1)
  - DRUG ERUPTION [None]
